FAERS Safety Report 10512631 (Version 1)
Quarter: 2014Q4

REPORT INFORMATION
  Report Type: Report from Study
  Country: MX (occurrence: MX)
  Receive Date: 20141011
  Receipt Date: 20141011
  Transmission Date: 20150528
  Serious: Yes (Other)
  Sender: FDA-Public Use
  Company Number: PHHY2014MX132497

PATIENT
  Age: 76 Year
  Sex: Female

DRUGS (2)
  1. EXELON PATCH [Suspect]
     Active Substance: RIVASTIGMINE
     Indication: OFF LABEL USE
     Dosage: 9.5 MG, DAILY (PATCH 10 CM2)
     Route: 062
     Dates: start: 201406
  2. EXELON PATCH [Suspect]
     Active Substance: RIVASTIGMINE
     Indication: ANXIETY
     Dosage: 4.6 MG, DAILY (PATCH 5 CM2)
     Route: 062

REACTIONS (5)
  - Daydreaming [Unknown]
  - Depression [Unknown]
  - Anxiety [Not Recovered/Not Resolved]
  - Dementia Alzheimer^s type [Unknown]
  - Memory impairment [Unknown]
